FAERS Safety Report 4645018-9 (Version None)
Quarter: 2005Q2

REPORT INFORMATION
  Report Type: 
  Country: None (occurrence: None)
  Receive Date: 20050426
  Receipt Date: 20050413
  Transmission Date: 20051028
  Serious: Yes (Other)
  Sender: FDA-Public Use
  Company Number: GBWYE584713APR05

PATIENT
  Age: 71 Year
  Sex: Female

DRUGS (3)
  1. ENBREL [Suspect]
     Indication: RHEUMATOID ARTHRITIS
     Dosage: 25MG FREQUENCY UNKNOWN
     Route: 058
     Dates: start: 20030530
  2. CELECOXIB [Concomitant]
     Dosage: 200MG FREQUENCY UNKNOWN
     Route: 048
  3. BENDROFLUAZIDE [Concomitant]
     Dosage: 2.5MG FREQUENCY UNKNOWN
     Route: 048

REACTIONS (2)
  - LYMPHOID TISSUE HYPERPLASIA [None]
  - SINUSITIS [None]
